FAERS Safety Report 21532452 (Version 1)
Quarter: 2022Q4

REPORT INFORMATION
  Report Type: Report from Study
  Country: US (occurrence: US)
  Receive Date: 20221101
  Receipt Date: 20221101
  Transmission Date: 20230112
  Serious: No
  Sender: FDA-Public Use
  Company Number: US-ABBVIE-22K-163-4419623-00

PATIENT
  Sex: Male

DRUGS (3)
  1. HUMIRA [Suspect]
     Active Substance: ADALIMUMAB
     Indication: Psoriatic arthropathy
     Dosage: FORM STRENGTH - 40 MG
     Route: 058
     Dates: start: 20210807, end: 2022
  2. HUMIRA [Suspect]
     Active Substance: ADALIMUMAB
     Indication: Psoriasis
     Dosage: FORM STRENGTH - 40 MG
     Route: 058
     Dates: start: 20210807
  3. HUMIRA [Suspect]
     Active Substance: ADALIMUMAB
     Dosage: FORM STRENGTH - 40 MG
     Route: 058
     Dates: start: 20210807

REACTIONS (12)
  - Condition aggravated [Unknown]
  - Joint range of motion decreased [Unknown]
  - Arthropathy [Recovering/Resolving]
  - Sinusitis [Recovered/Resolved]
  - Pain [Unknown]
  - Pain in extremity [Unknown]
  - Haemorrhoids [Unknown]
  - Psoriasis [Recovering/Resolving]
  - Device malfunction [Unknown]
  - Burning sensation [Unknown]
  - Mobility decreased [Unknown]
  - Hypoaesthesia [Unknown]

NARRATIVE: CASE EVENT DATE: 20220101
